FAERS Safety Report 23717332 (Version 1)
Quarter: 2024Q2

REPORT INFORMATION
  Report Type: Spontaneous
  Country: PL (occurrence: PL)
  Receive Date: 20240408
  Receipt Date: 20240408
  Transmission Date: 20240716
  Serious: Yes (Hospitalization, Other)
  Sender: FDA-Public Use
  Company Number: PL-ABBVIE-5707321

PATIENT
  Age: 76 Year
  Sex: Female

DRUGS (10)
  1. VENETOCLAX [Suspect]
     Active Substance: VENETOCLAX
     Indication: Acute myeloid leukaemia
     Dosage: 400 MILLIGRAM
     Route: 048
     Dates: start: 20230401
  2. VENETOCLAX [Suspect]
     Active Substance: VENETOCLAX
     Indication: Acute myeloid leukaemia
     Dosage: 200 MILLIGRAM
     Route: 048
     Dates: start: 20230331, end: 20230331
  3. VENETOCLAX [Suspect]
     Active Substance: VENETOCLAX
     Indication: Acute myeloid leukaemia
     Dosage: 100 MILLIGRAM
     Route: 048
     Dates: start: 20230330, end: 20230330
  4. VENETOCLAX [Suspect]
     Active Substance: VENETOCLAX
     Indication: Acute myeloid leukaemia
     Dosage: 300 MILLIGRAM
     Route: 048
  5. VENETOCLAX [Suspect]
     Active Substance: VENETOCLAX
     Indication: Acute myeloid leukaemia
     Dosage: 300 MILLIGRAM
     Route: 048
     Dates: start: 2023
  6. MOLNUPIRAVIR [Concomitant]
     Active Substance: MOLNUPIRAVIR
     Indication: COVID-19 pneumonia
     Dates: start: 202303
  7. AZACITIDINE [Concomitant]
     Active Substance: AZACITIDINE
     Indication: Acute myeloid leukaemia
     Dosage: 120 MILLIGRAM?7 DAYS IN EVERY CYCLE
     Route: 058
     Dates: start: 20230330
  8. AZACITIDINE [Concomitant]
     Active Substance: AZACITIDINE
     Indication: Acute myeloid leukaemia
     Dosage: REDUCED
     Route: 058
     Dates: start: 2023
  9. ALLOPURINOL [Concomitant]
     Active Substance: ALLOPURINOL
     Indication: Prophylaxis
     Dosage: 300 MILLIGRAM
     Dates: start: 2023
  10. HYDROXYUREA [Concomitant]
     Active Substance: HYDROXYUREA
     Indication: Product used for unknown indication
     Dates: start: 2023

REACTIONS (11)
  - Erysipelas [Recovered/Resolved]
  - Platelet count decreased [Recovered/Resolved]
  - Myelodysplastic syndrome [Unknown]
  - Minimal residual disease [Unknown]
  - Drug intolerance [Unknown]
  - Leukopenia [Recovering/Resolving]
  - Mean cell volume increased [Unknown]
  - Incorrect dosage administered [Unknown]
  - Pancytopenia [Unknown]
  - Neutropenia [Recovering/Resolving]
  - Red blood cell count increased [Unknown]

NARRATIVE: CASE EVENT DATE: 20230101
